FAERS Safety Report 4652463-4 (Version None)
Quarter: 2005Q2

REPORT INFORMATION
  Report Type: 
  Country: None (occurrence: None)
  Receive Date: 20050502
  Receipt Date: 20050420
  Transmission Date: 20051028
  Serious: Yes (Death)
  Sender: FDA-Public Use
  Company Number: 2005-04-1303

PATIENT
  Sex: Male

DRUGS (12)
  1. ASMANEX TWISTHALER [Suspect]
     Dosage: INHALATION
     Route: 055
  2. COMBIVENT [Suspect]
     Dosage: INHALATION
     Route: 055
  3. CITALOPRAM [Suspect]
  4. LOSARTAN POTASSIUM [Suspect]
     Dosage: ORAL
     Route: 048
  5. TIOTROPIUM BROMIDE CAPSULES [Suspect]
     Dosage: 18.0 MG ORAL
     Route: 048
  6. NYSTATIN [Suspect]
  7. OXYGEN [Suspect]
  8. PHOLCODINE TAB [Suspect]
  9. SALBUTAMOL (ALBUTEROL) [Suspect]
  10. SERETIDE (SALMETEROL XINAFOATE/FLUTICASONE PROPIONAT [Suspect]
  11. XALATAN [Suspect]
  12. ZOPICLONE [Suspect]

REACTIONS (1)
  - CHRONIC OBSTRUCTIVE AIRWAYS DISEASE EXACERBATED [None]
